FAERS Safety Report 23040364 (Version 2)
Quarter: 2023Q4

REPORT INFORMATION
  Report Type: Other
  Country: US (occurrence: US)
  Receive Date: 20231006
  Receipt Date: 20231006
  Transmission Date: 20240109
  Serious: No
  Sender: FDA-Public Use
  Company Number: US-TRAVERE-2023TVT00290

PATIENT
  Age: 11 Year
  Sex: Male

DRUGS (27)
  1. CHOLBAM [Suspect]
     Active Substance: CHOLIC ACID
     Indication: Smith-Lemli-Opitz syndrome
     Dosage: 3 CAPSULES AM AND 2 CAPSULES PM
     Route: 048
     Dates: start: 20230620
  2. HCTZ Cream [Concomitant]
  3. MAGNESIUM CREAM [Concomitant]
  4. CANNABIS SATIVA SUBSP. INDICA TOP [Concomitant]
     Active Substance: CANNABIS SATIVA SUBSP. INDICA TOP
  5. MYLANTA GAS MINIS [Concomitant]
  6. TYLENOL [Concomitant]
     Active Substance: ACETAMINOPHEN
  7. CHILDRENS MOTRIN [Concomitant]
     Active Substance: IBUPROFEN
  8. CALCIUM [Concomitant]
     Active Substance: CALCIUM
  9. MELATONIN [Concomitant]
     Active Substance: MELATONIN
  10. GABAPENTIN [Concomitant]
     Active Substance: GABAPENTIN
  11. Probiotic Daily [Concomitant]
  12. ALLEGRA ALLERGY [Concomitant]
     Active Substance: FEXOFENADINE HYDROCHLORIDE
  13. NITROFURANTOIN MACROCRYSTALS [Concomitant]
     Active Substance: NITROFURANTOIN
  14. FOLIC ACID [Concomitant]
     Active Substance: FOLIC ACID
  15. VITAMIN B6 [Concomitant]
     Active Substance: PYRIDOXINE HYDROCHLORIDE
  16. OMEGA 3 [Concomitant]
     Active Substance: CAPSAICIN
  17. KEPPRA [Concomitant]
     Active Substance: LEVETIRACETAM
  18. VITAMIN B2 [Concomitant]
     Active Substance: RIBOFLAVIN
  19. Iron Supplement Childrens [Concomitant]
  20. ZYRTEC [Concomitant]
     Active Substance: CETIRIZINE HYDROCHLORIDE
  21. OXYBUTYNIN CHLORIDE [Concomitant]
     Active Substance: OXYBUTYNIN CHLORIDE
  22. FLONASE ALLERGY RELIEF [Concomitant]
     Active Substance: FLUTICASONE PROPIONATE
  23. TERAZOSIN HYDROCHLORIDE [Concomitant]
     Active Substance: TERAZOSIN HYDROCHLORIDE
  24. TRAZODONE HCL [Concomitant]
     Active Substance: TRAZODONE HYDROCHLORIDE
  25. SULFASALAZINE [Concomitant]
     Active Substance: SULFASALAZINE
  26. CLONIDINE HYDROCHLORIDE [Concomitant]
     Active Substance: CLONIDINE HYDROCHLORIDE
  27. LANSOPRAZOLE [Concomitant]
     Active Substance: LANSOPRAZOLE

REACTIONS (7)
  - Vomiting [Unknown]
  - Diarrhoea [Unknown]
  - Irritability [Unknown]
  - Pain [Unknown]
  - Jaundice [Unknown]
  - Gastric infection [Unknown]
  - Liver function test abnormal [Unknown]
